FAERS Safety Report 9293161 (Version 2)
Quarter: 2013Q2

REPORT INFORMATION
  Report Type: Spontaneous
  Country: US (occurrence: None)
  Receive Date: 20130514
  Receipt Date: 20130521
  Transmission Date: 20140414
  Serious: Yes (Hospitalization, Other)
  Sender: FDA-Public Use
  Company Number: AUR-APL-2013-03856

PATIENT
  Age: 53 Year
  Sex: Male
  Weight: 135 kg

DRUGS (12)
  1. AMLODIPINE (AMLODIPINE) [Suspect]
     Indication: HYPERTENSION
     Dates: end: 2012
  2. LISINOPRIL (LISINOPRIL) [Suspect]
     Indication: HYPERTENSION
     Dates: end: 2012
  3. LISINOPRIL+HYDROCHLOROTHIAZIDE [Suspect]
     Indication: PRODUCT USED FOR UNKNOWN INDICATION
     Dosage: 1 TAB (20/25) DAILY, ORAL
     Route: 048
     Dates: start: 201203, end: 20120921
  4. SUTENT [Suspect]
     Indication: RENAL CELL CARCINOMA STAGE IV
     Dosage: 50MG DAILY CYCLIC (50 MG), ORAL
     Route: 048
     Dates: start: 20120501, end: 20120521
  5. SUTENT [Suspect]
     Dosage: 50MG DAILY CYCLIC (50 MG), ORAL
     Route: 048
     Dates: start: 20120501, end: 20120521
  6. IMODIUM (LOPERAMIDE HYDROCHLORIDE) [Concomitant]
  7. TYLENOL (PARACETAMOL) [Concomitant]
  8. NEURONTIN (GABAPENTIN) [Concomitant]
  9. ZYRTEC (CETIRIZINE HYDROCHLORIE) [Concomitant]
  10. HYDROCHLOROTHIAZIDE (HYDROCHLOROTHIAZIDE) [Concomitant]
  11. BENICAR (OLMESARTAN MEDOXOMIL) [Concomitant]
  12. POTASSIUM GLUCONATE [Concomitant]

REACTIONS (17)
  - Dyspnoea [None]
  - Cough [None]
  - Increased upper airway secretion [None]
  - Pain [None]
  - Dizziness [None]
  - Pain in extremity [None]
  - Oedema peripheral [None]
  - Oedema peripheral [None]
  - Rash [None]
  - Burning sensation [None]
  - Tenderness [None]
  - Skin exfoliation [None]
  - Heart rate increased [None]
  - Blood pressure increased [None]
  - Haemoptysis [None]
  - Cardiac failure congestive [None]
  - Pulmonary oedema [None]
